FAERS Safety Report 18764452 (Version 1)
Quarter: 2021Q1

REPORT INFORMATION
  Report Type: Spontaneous
  Country: FR (occurrence: FR)
  Receive Date: 20210120
  Receipt Date: 20210120
  Transmission Date: 20210419
  Serious: Yes (Hospitalization)
  Sender: FDA-Public Use
  Company Number: FR-EISAI MEDICAL RESEARCH-EC-2021-086311

PATIENT
  Age: 27 Year
  Sex: Female
  Weight: 46 kg

DRUGS (4)
  1. VIMPAT [Concomitant]
     Active Substance: LACOSAMIDE
     Indication: EPILEPSY
     Route: 048
  2. DEPAKINE [Concomitant]
     Active Substance: VALPROATE SODIUM
     Indication: EPILEPSY
     Route: 048
  3. LAMICTAL [Concomitant]
     Active Substance: LAMOTRIGINE
     Indication: EPILEPSY
     Route: 048
  4. FYCOMPA [Suspect]
     Active Substance: PERAMPANEL
     Indication: EPILEPSY
     Route: 048
     Dates: start: 20200616, end: 20200830

REACTIONS (8)
  - Decreased appetite [Recovered/Resolved]
  - Suicide attempt [Recovered/Resolved]
  - Anxiety [Recovered/Resolved]
  - Weight decreased [Recovered/Resolved]
  - Suicidal ideation [Recovered/Resolved]
  - Intentional overdose [Recovered/Resolved]
  - Sleep disorder [Recovered/Resolved]
  - Depression [Recovered/Resolved]

NARRATIVE: CASE EVENT DATE: 202006
